FAERS Safety Report 5011362-9 (Version None)
Quarter: 2006Q2

REPORT INFORMATION
  Report Type: 
  Country: None (occurrence: None)
  Receive Date: 20060404
  Receipt Date: 20051122
  Transmission Date: 20061013
  Serious: No
  Sender: FDA-Public Use
  Company Number: USA0510111767

PATIENT
  Age: 50 Year
  Sex: Female
  Weight: 95.2 kg

DRUGS (11)
  1. CYMBALTA [Suspect]
     Indication: PAIN
     Dosage: 60 MG, ORAL
     Route: 048
     Dates: start: 20050901
  2. EFFEXOR [Concomitant]
  3. WELLBUTRIN SR [Concomitant]
  4. NEURONTIN [Concomitant]
  5. HYDROCHLOROTHIAZIDE [Concomitant]
  6. LISINOPRIL [Concomitant]
  7. BUSPIRONE HCL [Concomitant]
  8. ESTRADIOL [Concomitant]
  9. ATENOLOL [Concomitant]
  10. TIZANIDINE HCL [Concomitant]
  11. ASACOL [Concomitant]

REACTIONS (4)
  - DEPRESSION [None]
  - DRUG WITHDRAWAL SYNDROME [None]
  - INFLUENZA LIKE ILLNESS [None]
  - PARAESTHESIA [None]
